FAERS Safety Report 4975665-6 (Version None)
Quarter: 2006Q2

REPORT INFORMATION
  Report Type: 
  Country: None (occurrence: None)
  Receive Date: 20060411
  Receipt Date: 20060328
  Transmission Date: 20061013
  Serious: Yes (Death, Hospitalization, Other)
  Sender: FDA-Public Use
  Company Number: A-US2005-10967

PATIENT
  Age: 54 Year
  Sex: Female
  Weight: 64.9 kg

DRUGS (13)
  1. TRACLEER [Suspect]
     Indication: PULMONARY HYPERTENSION
     Dosage: SEE IMAGE
     Route: 048
     Dates: start: 20041001, end: 20041101
  2. TRACLEER [Suspect]
     Indication: PULMONARY HYPERTENSION
     Dosage: SEE IMAGE
     Route: 048
     Dates: start: 20041101, end: 20050201
  3. TRACLEER [Suspect]
     Indication: PULMONARY HYPERTENSION
     Dosage: SEE IMAGE
     Route: 048
     Dates: start: 20050201, end: 20050606
  4. FLOLAN [Suspect]
     Indication: PULMONARY HYPERTENSION
     Dates: start: 20020301
  5. COUMADIN [Concomitant]
  6. ALDACTONE [Concomitant]
  7. ZOLOFT [Concomitant]
  8. POTASSIUM (POTASSIUM) [Concomitant]
  9. DIGOXIN [Concomitant]
  10. ZYRTEC [Concomitant]
  11. LOVENOX [Concomitant]
  12. LACTULOSE [Concomitant]
  13. PHYTONADIONE [Concomitant]

REACTIONS (52)
  - ABDOMINAL DISTENSION [None]
  - ABDOMINAL PAIN [None]
  - ABDOMINAL TENDERNESS [None]
  - AMMONIA INCREASED [None]
  - ANOREXIA [None]
  - ASCITES [None]
  - AUTOIMMUNE HEPATITIS [None]
  - AZOTAEMIA [None]
  - BALANCE DISORDER [None]
  - BILIARY COLIC [None]
  - CHOLELITHIASIS [None]
  - CHOLESTASIS [None]
  - CHRONIC HEPATITIS [None]
  - CONFUSIONAL STATE [None]
  - DEHYDRATION [None]
  - DRUG TOXICITY [None]
  - EXERCISE TOLERANCE DECREASED [None]
  - FAILURE TO THRIVE [None]
  - FATIGUE [None]
  - FLUID INTAKE REDUCED [None]
  - FLUSHING [None]
  - FREQUENT BOWEL MOVEMENTS [None]
  - GALLBLADDER DISORDER [None]
  - HAEMATOCRIT DECREASED [None]
  - HEADACHE [None]
  - HEPATIC CIRRHOSIS [None]
  - HEPATIC ENCEPHALOPATHY [None]
  - HEPATIC FAILURE [None]
  - HEPATIC NEOPLASM [None]
  - HEPATOMEGALY [None]
  - HYPERCHLORAEMIA [None]
  - INTERNATIONAL NORMALISED RATIO INCREASED [None]
  - JUGULAR VEIN DISTENSION [None]
  - LABYRINTHITIS [None]
  - LETHARGY [None]
  - MALAISE [None]
  - METABOLIC ACIDOSIS [None]
  - NASAL CONGESTION [None]
  - NAUSEA [None]
  - ORAL INTAKE REDUCED [None]
  - OTITIS EXTERNA [None]
  - PLATELET COUNT DECREASED [None]
  - PULMONARY HYPERTENSION [None]
  - RENAL FAILURE ACUTE [None]
  - RENAL TUBULAR ACIDOSIS [None]
  - RHINITIS [None]
  - THROMBOCYTOPENIA [None]
  - THROMBOSIS [None]
  - VITAMIN K DEFICIENCY [None]
  - VOMITING [None]
  - WEIGHT DECREASED [None]
  - WHITE BLOOD CELL COUNT INCREASED [None]
